FAERS Safety Report 25905830 (Version 1)
Quarter: 2025Q4

REPORT INFORMATION
  Report Type: Spontaneous
  Country: GB (occurrence: GB)
  Receive Date: 20251010
  Receipt Date: 20251010
  Transmission Date: 20260117
  Serious: Yes (Congenital Anomaly, Other)
  Sender: AMERICAN REGENT
  Company Number: GB-AMERICAN REGENT INC-2025003754

PATIENT
  Sex: Female
  Weight: 91 kg

DRUGS (1)
  1. FERINJECT [Suspect]
     Active Substance: FERRIC CARBOXYMALTOSE
     Indication: Iron deficiency anaemia
     Dosage: 1 GRAM
     Route: 065
     Dates: start: 20250701

REACTIONS (4)
  - Abortion spontaneous [Recovered/Resolved]
  - Uterine rupture [Unknown]
  - Amniotic cavity infection [Unknown]
  - Maternal exposure during pregnancy [Unknown]

NARRATIVE: CASE EVENT DATE: 20250701
